FAERS Safety Report 5721780-9 (Version None)
Quarter: 2008Q2

REPORT INFORMATION
  Report Type: 
  Country: None (occurrence: None)
  Receive Date: 20080429
  Receipt Date: 20080416
  Transmission Date: 20081010
  Serious: Yes (Life-Threatening, Hospitalization)
  Sender: FDA-Public Use
  Company Number: DE-ROCHE-559305

PATIENT
  Sex: Male
  Weight: 88 kg

DRUGS (5)
  1. PEG-INTERFERON A-2A (RO 25-8310) [Suspect]
     Route: 058
     Dates: start: 20070302, end: 20071220
  2. COPEGUS [Concomitant]
     Route: 048
     Dates: start: 20070302, end: 20071220
  3. RAMIPRIL [Concomitant]
     Indication: HYPERTENSION
     Route: 048
     Dates: start: 20070425
  4. MIRTAZAPINE [Concomitant]
     Indication: SLEEP DISORDER
     Route: 048
     Dates: start: 20070205
  5. 1 CONCOMITANT DRUG [Concomitant]
     Indication: DEPRESSION
     Dosage: DRUG: METAMIRZIN
     Route: 048
     Dates: start: 20070212

REACTIONS (1)
  - THALAMIC INFARCTION [None]
